FAERS Safety Report 6635088-0 (Version None)
Quarter: 2010Q1

REPORT INFORMATION
  Report Type: 
  Country: None (occurrence: None)
  Receive Date: 20100315
  Receipt Date: 20100302
  Transmission Date: 20100710
  Serious: Yes (Hospitalization)
  Sender: FDA-Public Use
  Company Number: PHHY2010CZ12115

PATIENT
  Sex: Female

DRUGS (1)
  1. LAMISIL [Suspect]
     Indication: TINEA INFECTION
     Dosage: 250 MG
     Route: 048
     Dates: start: 20100212

REACTIONS (3)
  - BODY TEMPERATURE INCREASED [None]
  - JOINT SWELLING [None]
  - RASH MACULO-PAPULAR [None]
